FAERS Safety Report 21554897 (Version 1)
Quarter: 2022Q4

REPORT INFORMATION
  Report Type: Spontaneous
  Country: PL (occurrence: PL)
  Receive Date: 20221104
  Receipt Date: 20221104
  Transmission Date: 20230113
  Serious: Yes (Hospitalization)
  Sender: FDA-Public Use
  Company Number: PL-PFIZER INC-PV202200095581

PATIENT
  Age: 30 Year
  Sex: Female

DRUGS (1)
  1. ETHINYL ESTRADIOL\LEVONORGESTREL [Suspect]
     Active Substance: ETHINYL ESTRADIOL\LEVONORGESTREL
     Indication: Uterine leiomyoma

REACTIONS (3)
  - Hereditary angioedema with normal C1 esterase inhibitor [Recovering/Resolving]
  - Skin lesion [Recovered/Resolved]
  - Off label use [Unknown]
